FAERS Safety Report 9208038 (Version 1)
Quarter: 2013Q2

REPORT INFORMATION
  Report Type: Spontaneous
  Country: US (occurrence: US)
  Receive Date: 20130403
  Receipt Date: 20130403
  Transmission Date: 20140414
  Serious: Yes (Other)
  Sender: FDA-Public Use
  Company Number: PHHY2013US031307

PATIENT
  Age: 55 Year
  Sex: Female

DRUGS (1)
  1. ACETYLSALICYLIC ACID [Suspect]
     Indication: HEADACHE
     Dosage: 2 DF, AS NEEDED
     Route: 048
     Dates: end: 1993

REACTIONS (1)
  - Gastric haemorrhage [Recovered/Resolved]
